FAERS Safety Report 4805263-6 (Version None)
Quarter: 2005Q4

REPORT INFORMATION
  Report Type: 
  Country: None (occurrence: None)
  Receive Date: 20051018
  Receipt Date: 20051007
  Transmission Date: 20060501
  Serious: Yes (Disabling)
  Sender: FDA-Public Use
  Company Number: HQWYE944410OCT05

PATIENT
  Age: 27 Year
  Sex: Female

DRUGS (2)
  1. EFFEXOR XR [Suspect]
     Dosage: 150 MG 1X PER 1 DAY
     Route: 048
     Dates: start: 20030104
  2. CELEBREX [Suspect]
     Dosage: 200 MG 2X PER 1 DAY
     Route: 048
     Dates: start: 20050301

REACTIONS (8)
  - AFFECT LABILITY [None]
  - CRYING [None]
  - DRUG EFFECT DECREASED [None]
  - DRUG INTERACTION [None]
  - EMOTIONAL DISORDER [None]
  - PANIC ATTACK [None]
  - STRESS [None]
  - TREMOR [None]
